FAERS Safety Report 19252777 (Version 1)
Quarter: 2021Q2

REPORT INFORMATION
  Report Type: Spontaneous
  Country: US (occurrence: US)
  Receive Date: 20210512
  Receipt Date: 20210512
  Transmission Date: 20210717
  Serious: Yes (Hospitalization)
  Sender: FDA-Public Use
  Company Number: None

PATIENT
  Sex: Female

DRUGS (11)
  1. MAGNESIUM [Concomitant]
     Active Substance: MAGNESIUM
  2. FUROSMIDE [Concomitant]
  3. KETOCONAZOLE. [Concomitant]
     Active Substance: KETOCONAZOLE
  4. MEMANTINE. [Concomitant]
     Active Substance: MEMANTINE
  5. CAPECITABINE 500MG [Suspect]
     Active Substance: CAPECITABINE
     Dosage: ?          OTHER FREQUENCY:QDX14D;?
     Route: 048
  6. MIRTAZAPINE. [Concomitant]
     Active Substance: MIRTAZAPINE
  7. LOVASTATIN. [Concomitant]
     Active Substance: LOVASTATIN
  8. QUIETIAPINE [Concomitant]
     Active Substance: QUETIAPINE
  9. DONEPEZIL. [Concomitant]
     Active Substance: DONEPEZIL
  10. ENOXAPARIN [Concomitant]
     Active Substance: ENOXAPARIN
  11. ESTRADIOL. [Concomitant]
     Active Substance: ESTRADIOL

REACTIONS (2)
  - Hospitalisation [None]
  - Intentional dose omission [None]
